FAERS Safety Report 20491120 (Version 4)
Quarter: 2022Q1

REPORT INFORMATION
  Report Type: Report from Study
  Country: DE (occurrence: DE)
  Receive Date: 20220218
  Receipt Date: 20220316
  Transmission Date: 20220423
  Serious: Yes (Hospitalization)
  Sender: FDA-Public Use
  Company Number: DE-JNJFOC-20220215271

PATIENT
  Age: 66 Year
  Sex: Female
  Weight: 78.4 kg

DRUGS (4)
  1. DARATUMUMAB [Suspect]
     Active Substance: DARATUMUMAB
     Indication: Plasma cell myeloma
     Route: 058
     Dates: start: 20220131
  2. DARATUMUMAB [Suspect]
     Active Substance: DARATUMUMAB
     Dosage: C1D8
     Route: 058
     Dates: start: 20220207
  3. DARATUMUMAB [Suspect]
     Active Substance: DARATUMUMAB
     Route: 058
     Dates: start: 20220221
  4. DARATUMUMAB [Suspect]
     Active Substance: DARATUMUMAB
     Dosage: C2D1
     Route: 058
     Dates: start: 20220228

REACTIONS (2)
  - Cytokine release syndrome [Recovered/Resolved]
  - Cytokine release syndrome [Recovered/Resolved]

NARRATIVE: CASE EVENT DATE: 20220204
